FAERS Safety Report 13356610 (Version 1)
Quarter: 2017Q1

REPORT INFORMATION
  Report Type: Spontaneous
  Country: US (occurrence: US)
  Receive Date: 20170321
  Receipt Date: 20170321
  Transmission Date: 20170429
  Serious: No
  Sender: FDA-Public Use
  Company Number: US-SA-2016SA042549

PATIENT
  Age: 63 Year
  Sex: Female

DRUGS (1)
  1. NASACORT ALLERGY 24HR [Suspect]
     Active Substance: TRIAMCINOLONE ACETONIDE
     Indication: COUGH
     Dosage: PRODUCT START?DATE 3 WEEKS AGO?DOSES.?NASACORT 120?SPRAY
     Route: 065

REACTIONS (1)
  - Drug ineffective [Unknown]
